FAERS Safety Report 21303207 (Version 2)
Quarter: 2022Q4

REPORT INFORMATION
  Report Type: Report from Study
  Country: IN (occurrence: IN)
  Receive Date: 20220907
  Receipt Date: 20221020
  Transmission Date: 20230112
  Serious: Yes (Hospitalization, Other)
  Sender: FDA-Public Use
  Company Number: IN-TAKEDA-2021TUS077016

PATIENT
  Sex: Male

DRUGS (1)
  1. VEDOLIZUMAB [Suspect]
     Active Substance: VEDOLIZUMAB
     Indication: Crohn^s disease
     Dosage: 300 MILLIGRAM
     Route: 042
     Dates: start: 20210206

REACTIONS (8)
  - Ascites [Unknown]
  - Vomiting [Unknown]
  - Gastroenteritis [Unknown]
  - Asthenia [Unknown]
  - Weight decreased [Unknown]
  - Stress [Unknown]
  - Sleep disorder [Unknown]
  - Treatment delayed [Unknown]
